FAERS Safety Report 6340318-9 (Version None)
Quarter: 2009Q3

REPORT INFORMATION
  Report Type: 
  Country: None (occurrence: None)
  Receive Date: 20090902
  Receipt Date: 20090826
  Transmission Date: 20100115
  Serious: Yes (Other)
  Sender: FDA-Public Use
  Company Number: GXKR2009GB09585

PATIENT
  Age: 40 Year
  Sex: Male

DRUGS (10)
  1. MIRTAZAPINE [Suspect]
  2. RISPERIDONE [Suspect]
  3. ABILIFY [Suspect]
     Indication: METABOLIC SYNDROME
     Dosage: 15 MG, QD (IN NIGHT), ORAL
     Route: 048
     Dates: start: 20081001
  4. ABILIFY [Suspect]
     Indication: SCHIZOAFFECTIVE DISORDER
     Dosage: 15 MG, QD (IN NIGHT), ORAL
     Route: 048
     Dates: start: 20081001
  5. DULOXETINE HYDROCHLORIDE (DULOXETINE HYDROCHLORIDE) [Suspect]
  6. QUETIAPINE FUMARATE [Suspect]
  7. VALPROATE SODIUM [Suspect]
  8. VENLAFAXINE HCL [Concomitant]
  9. LITHIUM CARBONATE [Concomitant]
  10. DRUG USED IN DIABETES (NO INGREDIENTS/SUBSTANCES) [Concomitant]

REACTIONS (3)
  - HYPOTHYROIDISM [None]
  - LIVER FUNCTION TEST ABNORMAL [None]
  - METABOLIC SYNDROME [None]
